FAERS Safety Report 6054983-7 (Version None)
Quarter: 2009Q1

REPORT INFORMATION
  Report Type: 
  Country: None (occurrence: None)
  Receive Date: 20090128
  Receipt Date: 20090116
  Transmission Date: 20090719
  Serious: Yes (Death, Other)
  Sender: FDA-Public Use
  Company Number: US-PFIZER INC-2007000982

PATIENT
  Sex: Male
  Weight: 91 kg

DRUGS (1)
  1. VIAGRA [Suspect]
     Indication: ERECTILE DYSFUNCTION
     Dosage: UNK
     Route: 048
     Dates: start: 20001128, end: 20050601

REACTIONS (3)
  - BLINDNESS [None]
  - COMPLETED SUICIDE [None]
  - OPTIC ISCHAEMIC NEUROPATHY [None]
